FAERS Safety Report 6584542-9 (Version None)
Quarter: 2010Q1

REPORT INFORMATION
  Report Type: 
  Country: None (occurrence: None)
  Receive Date: 20100217
  Receipt Date: 20100211
  Transmission Date: 20100710
  Serious: Yes (Other)
  Sender: FDA-Public Use
  Company Number: US-RB-002632-10

PATIENT
  Age: 15 Year
  Sex: Female

DRUGS (1)
  1. DELSYM ADULT ORANGE 3 OZ [Suspect]
     Dosage: INGESTED HALF A BOTTLE OF DELSYM 3 OZ
     Route: 048
     Dates: start: 20100210

REACTIONS (6)
  - ATAXIA [None]
  - CONFUSIONAL STATE [None]
  - DRUG ABUSE [None]
  - FATIGUE [None]
  - FEELING DRUNK [None]
  - SOMNOLENCE [None]
